FAERS Safety Report 7623077-9 (Version None)
Quarter: 2011Q3

REPORT INFORMATION
  Report Type: 
  Country: None (occurrence: None)
  Receive Date: 20110720
  Receipt Date: 20110706
  Transmission Date: 20111222
  Serious: Yes (Other)
  Sender: FDA-Public Use
  Company Number: US-AMGEN-USASP2011029078

PATIENT
  Age: 61 Year
  Sex: Female

DRUGS (2)
  1. ENBREL [Suspect]
  2. ENBREL [Suspect]
     Indication: ARTHRITIS REACTIVE
     Dosage: 50 MG, QWK
     Dates: start: 20090409

REACTIONS (11)
  - BACK PAIN [None]
  - BONE PAIN [None]
  - UVEITIS [None]
  - DRUG INEFFECTIVE [None]
  - PAIN [None]
  - INAPPROPRIATE SCHEDULE OF DRUG ADMINISTRATION [None]
  - RASH PRURITIC [None]
  - DIZZINESS [None]
  - VISION BLURRED [None]
  - MIGRAINE [None]
  - UPPER RESPIRATORY TRACT INFECTION [None]
